FAERS Safety Report 6980719-9 (Version None)
Quarter: 2010Q3

REPORT INFORMATION
  Report Type: 
  Country: None (occurrence: None)
  Receive Date: 20100914
  Receipt Date: 20100907
  Transmission Date: 20110219
  Serious: Yes (Hospitalization, Other)
  Sender: FDA-Public Use
  Company Number: ZA-ABBOTT-10P-143-0669456-00

PATIENT
  Age: 5 Year
  Sex: Female

DRUGS (6)
  1. EPILIM SYRUP [Suspect]
     Indication: EPILEPSY
     Route: 048
     Dates: start: 20071018
  2. TOPIRAMATE [Suspect]
     Indication: COMPLEX PARTIAL SEIZURES
     Route: 048
     Dates: start: 20091202
  3. TOPIRAMATE [Suspect]
     Route: 048
  4. PREDNISOLONE [Concomitant]
     Indication: PRODUCT USED FOR UNKNOWN INDICATION
     Dates: start: 20100414
  5. CLARITHROMYCIN [Concomitant]
     Indication: PRODUCT USED FOR UNKNOWN INDICATION
     Dates: start: 20100414
  6. DESELEX [Concomitant]
     Indication: PRODUCT USED FOR UNKNOWN INDICATION
     Dates: start: 20050506

REACTIONS (2)
  - CONVULSION [None]
  - GASTRIC ULCER [None]
